FAERS Safety Report 8777361 (Version 2)
Quarter: 2012Q4

REPORT INFORMATION
  Report Type: 
  Country: US (occurrence: US)
  Receive Date: 20120911
  Receipt Date: 20121018
  Transmission Date: 20130627
  Serious: Yes (Hospitalization, Other)
  Sender: FDA-Public Use
  Company Number: US-PFIZER INC-2012221913

PATIENT
  Sex: Male

DRUGS (3)
  1. ZOCOR [Suspect]
     Indication: BLOOD CHOLESTEROL ABNORMAL
     Dosage: 80 mg, daily
     Dates: start: 1999
  2. AVANDIA [Suspect]
     Indication: DIABETES MELLITUS
     Dosage: 2 mg, 3x/day
     Dates: start: 1999
  3. PRANDIN [Suspect]
     Indication: DIABETES MELLITUS
     Dosage: UNK

REACTIONS (7)
  - Cerebrovascular accident [Unknown]
  - Memory impairment [Unknown]
  - Cerebral thrombosis [Unknown]
  - Joint range of motion decreased [Unknown]
  - Balance disorder [Unknown]
  - Gait disturbance [Unknown]
  - Change of bowel habit [Unknown]
